FAERS Safety Report 17757198 (Version 1)
Quarter: 2020Q2

REPORT INFORMATION
  Report Type: Spontaneous
  Country: US (occurrence: US)
  Receive Date: 20200507
  Receipt Date: 20200507
  Transmission Date: 20200714
  Serious: Yes (Death, Other)
  Sender: FDA-Public Use
  Company Number: US-ELI_LILLY_AND_COMPANY-US202005001321

PATIENT
  Age: 56 Year
  Sex: Female

DRUGS (1)
  1. IXEKIZUMAB [Suspect]
     Active Substance: IXEKIZUMAB
     Indication: PSORIATIC ARTHROPATHY
     Dosage: 160 MG, UNKNOWN
     Route: 065

REACTIONS (4)
  - Eczema [Unknown]
  - Abscess [Unknown]
  - Sarcoidosis [Unknown]
  - Duodenal ulcer perforation [Fatal]
